FAERS Safety Report 21610733 (Version 1)
Quarter: 2022Q4

REPORT INFORMATION
  Report Type: Report from Study
  Country: JP (occurrence: JP)
  Receive Date: 20221117
  Receipt Date: 20221117
  Transmission Date: 20230113
  Serious: Yes (Death)
  Sender: FDA-Public Use
  Company Number: JP-CHUGAI-A2018032760AA

PATIENT
  Sex: Female

DRUGS (11)
  1. TRASTUZUMAB [Suspect]
     Active Substance: TRASTUZUMAB
     Indication: Breast cancer
     Route: 041
     Dates: start: 20171204, end: 20171204
  2. TRASTUZUMAB [Suspect]
     Active Substance: TRASTUZUMAB
     Route: 041
     Dates: start: 20171225, end: 20180409
  3. TRASTUZUMAB [Suspect]
     Active Substance: TRASTUZUMAB
     Route: 041
     Dates: start: 20180507, end: 20180528
  4. CAPECITABINE [Suspect]
     Active Substance: CAPECITABINE
     Indication: Breast cancer
     Dosage: 1800MG,1 TIMES IN
     Route: 048
     Dates: start: 20171204, end: 20171217
  5. CAPECITABINE [Suspect]
     Active Substance: CAPECITABINE
     Dosage: 1800MG,1 TIMES IN
     Route: 048
     Dates: start: 20171225, end: 20180108
  6. CAPECITABINE [Suspect]
     Active Substance: CAPECITABINE
     Dosage: UNKNOWN
     Route: 048
     Dates: start: 20180115, end: 20180129
  7. CAPECITABINE [Suspect]
     Active Substance: CAPECITABINE
     Dosage: UNKNOWN
     Route: 048
     Dates: start: 20180205, end: 20180219
  8. CAPECITABINE [Suspect]
     Active Substance: CAPECITABINE
     Dosage: UNKNOWN
     Route: 048
     Dates: start: 20180226, end: 20180312
  9. CAPECITABINE [Suspect]
     Active Substance: CAPECITABINE
     Dosage: UNKNOWN
     Route: 048
     Dates: start: 20180319, end: 20180402
  10. CAPECITABINE [Suspect]
     Active Substance: CAPECITABINE
     Dosage: UNKNOWN
     Route: 048
     Dates: start: 20180507, end: 20180521
  11. CAPECITABINE [Suspect]
     Active Substance: CAPECITABINE
     Dosage: UNKNOWN
     Route: 048
     Dates: start: 20180528, end: 20180611

REACTIONS (1)
  - Death [Fatal]

NARRATIVE: CASE EVENT DATE: 20180706
